FAERS Safety Report 5584342-2 (Version None)
Quarter: 2008Q1

REPORT INFORMATION
  Report Type: 
  Country: None (occurrence: None)
  Receive Date: 20080108
  Receipt Date: 20080104
  Transmission Date: 20080703
  Serious: Yes (Other)
  Sender: FDA-Public Use
  Company Number: HQWYE659130JUL04

PATIENT
  Sex: Female
  Weight: 71.28 kg

DRUGS (4)
  1. PREMARIN [Suspect]
     Indication: HORMONE REPLACEMENT THERAPY
  2. ESTRATEST [Suspect]
     Indication: HORMONE REPLACEMENT THERAPY
  3. PREMARIN [Suspect]
  4. PROVERA [Suspect]
     Indication: HORMONE REPLACEMENT THERAPY

REACTIONS (1)
  - BREAST CANCER METASTATIC [None]
